FAERS Safety Report 12582045 (Version 1)
Quarter: 2016Q3

REPORT INFORMATION
  Report Type: Spontaneous
  Country: DE (occurrence: DE)
  Receive Date: 20160722
  Receipt Date: 20160722
  Transmission Date: 20161109
  Serious: Yes (Other)
  Sender: FDA-Public Use
  Company Number: DE-ROCHE-1798353

PATIENT
  Sex: Female

DRUGS (1)
  1. XELODA [Suspect]
     Active Substance: CAPECITABINE
     Indication: ANAL CANCER
     Route: 065

REACTIONS (4)
  - Diarrhoea [Unknown]
  - Crohn^s disease [Unknown]
  - Colitis [Unknown]
  - Gastrointestinal haemorrhage [Unknown]
